FAERS Safety Report 7753509-7 (Version None)
Quarter: 2011Q3

REPORT INFORMATION
  Report Type: 
  Country: None (occurrence: None)
  Receive Date: 20110915
  Receipt Date: 20110912
  Transmission Date: 20111222
  Serious: No
  Sender: FDA-Public Use
  Company Number: US-PFIZER INC-2011215012

PATIENT
  Sex: Female
  Weight: 66.667 kg

DRUGS (6)
  1. ABILIFY [Concomitant]
     Indication: POST-TRAUMATIC STRESS DISORDER
     Dosage: UNK
  2. LOPERAMIDE [Concomitant]
     Indication: LIVER OPERATION
     Dosage: UNK
  3. CLONAZEPAM [Suspect]
     Indication: POST-TRAUMATIC STRESS DISORDER
     Dosage: 1 MG, 4X/DAY
     Route: 048
  4. DIPHENOXYLATE HCL AND ATROPINE SULFATE [Concomitant]
     Indication: LIVER OPERATION
     Dosage: UNK
  5. PRISTIQ [Suspect]
     Indication: POST-TRAUMATIC STRESS DISORDER
     Dosage: 100 MG, 1X/DAY
     Route: 048
  6. DILAUDID [Concomitant]
     Indication: LIVER OPERATION
     Dosage: UNK, AS NEEDED

REACTIONS (1)
  - DRUG INEFFECTIVE [None]
